FAERS Safety Report 9574989 (Version 1)
Quarter: 2013Q4

REPORT INFORMATION
  Report Type: Spontaneous
  Country: MX (occurrence: MX)
  Receive Date: 20131001
  Receipt Date: 20131001
  Transmission Date: 20140711
  Serious: Yes (Other)
  Sender: FDA-Public Use
  Company Number: MX-B.I. PHARMACEUTICALS,INC./RIDGEFIELD-2013-MX-00302MX

PATIENT
  Sex: Male

DRUGS (1)
  1. PRADAXAR [Suspect]
     Indication: THROMBOSIS PROPHYLAXIS
     Dosage: CAP 110 MG
     Route: 048

REACTIONS (1)
  - Pulmonary embolism [Unknown]
